FAERS Safety Report 13535400 (Version 1)
Quarter: 2017Q2

REPORT INFORMATION
  Report Type: Spontaneous
  Country: FR (occurrence: FR)
  Receive Date: 20170511
  Receipt Date: 20170511
  Transmission Date: 20170830
  Serious: Yes (Hospitalization)
  Sender: FDA-Public Use
  Company Number: FR-PFIZER INC-2017200167

PATIENT
  Age: 57 Year
  Sex: Male

DRUGS (12)
  1. PACLITAXEL HOSPIRA [Suspect]
     Active Substance: PACLITAXEL
     Indication: LUNG ADENOCARCINOMA
     Dosage: 174 MG, UNK
     Route: 042
     Dates: start: 20170120, end: 20170324
  2. CARBOPLATINE HOSPIRA [Suspect]
     Active Substance: CARBOPLATIN
     Indication: LUNG ADENOCARCINOMA
     Dosage: 770 MG, UNK
     Route: 042
     Dates: start: 20170120, end: 20170324
  3. AZANTAC [Concomitant]
     Active Substance: RANITIDINE HYDROCHLORIDE
     Indication: PROPHYLAXIS
     Dosage: 50 MG, UNK
     Route: 042
     Dates: start: 20170120, end: 20170324
  4. LYRICA [Concomitant]
     Active Substance: PREGABALIN
     Dosage: 150, 3X/DAY
  5. IRBESARTAN. [Concomitant]
     Active Substance: IRBESARTAN
     Dosage: UNK
  6. OXYNORM [Concomitant]
     Active Substance: OXYCODONE HYDROCHLORIDE
     Dosage: UNK
  7. METHYLPREDNISOLONE SODIUM SUCCINATE. [Suspect]
     Active Substance: METHYLPREDNISOLONE SODIUM SUCCINATE
     Indication: PROPHYLAXIS
     Dosage: 80 MG, UNK
     Route: 042
     Dates: start: 20170120, end: 20170324
  8. DUOPLAVIN [Concomitant]
     Active Substance: ASPIRIN\CLOPIDOGREL
     Dosage: UNK
  9. TARDYFERON [Concomitant]
     Active Substance: FERROUS SULFATE
     Dosage: UNK
  10. CETIRIZINE [Concomitant]
     Active Substance: CETIRIZINE HYDROCHLORIDE
     Indication: PROPHYLAXIS
     Dosage: 10 MG, UNK
     Route: 048
     Dates: start: 20170120, end: 20170324
  11. OXYCONTIN [Concomitant]
     Active Substance: OXYCODONE HYDROCHLORIDE
     Dosage: UNK
  12. ONDANSETRON [Concomitant]
     Active Substance: ONDANSETRON
     Indication: PROPHYLAXIS
     Dosage: 8 MG, UNK
     Route: 048
     Dates: start: 20170120, end: 20170324

REACTIONS (2)
  - Pseudofolliculitis [Recovering/Resolving]
  - Rash pustular [Recovering/Resolving]

NARRATIVE: CASE EVENT DATE: 201702
